FAERS Safety Report 9321102 (Version 1)
Quarter: 2013Q2

REPORT INFORMATION
  Report Type: Spontaneous
  Country: US (occurrence: None)
  Receive Date: 20130530
  Receipt Date: 20130530
  Transmission Date: 20140414
  Serious: Yes (Disabling)
  Sender: FDA-Public Use
  Company Number: None

PATIENT
  Age: 57 Year
  Sex: Female
  Weight: 94 kg

DRUGS (2)
  1. LEVOFLOXACIN [Suspect]
     Indication: LOBAR PNEUMONIA
     Dosage: 7 1 DAILY STOPPES AFTER #5 PILL?MOTHS LATER /DAY STOPPED AFTER 2ND  PILL?3-15-3-20/TWICE IN APRIL
  2. LEVOFLOXACIN [Suspect]
     Indication: BRONCHITIS
     Dosage: 7 1 DAILY STOPPES AFTER #5 PILL?MOTHS LATER /DAY STOPPED AFTER 2ND  PILL?3-15-3-20/TWICE IN APRIL

REACTIONS (8)
  - Fatigue [None]
  - Dyspnoea [None]
  - Musculoskeletal pain [None]
  - Swelling face [None]
  - Tooth infection [None]
  - Cough [None]
  - Pruritus [None]
  - Rash [None]
